FAERS Safety Report 24590941 (Version 1)
Quarter: 2024Q4

REPORT INFORMATION
  Report Type: Spontaneous
  Country: ES (occurrence: ES)
  Receive Date: 20241107
  Receipt Date: 20241107
  Transmission Date: 20250115
  Serious: Yes (Other)
  Sender: AUROBINDO
  Company Number: ES-ELI_LILLY_AND_COMPANY-ES202407013656

PATIENT
  Age: 38 Year
  Sex: Female

DRUGS (5)
  1. EXEMESTANE [Suspect]
     Active Substance: EXEMESTANE
     Indication: Breast cancer
     Dosage: UNK
     Route: 065
  2. ABEMACICLIB [Suspect]
     Active Substance: ABEMACICLIB
     Indication: Breast cancer
     Dosage: 150 MILLIGRAM
     Route: 048
  3. ABEMACICLIB [Suspect]
     Active Substance: ABEMACICLIB
     Dosage: 150 MILLIGRAM
     Route: 048
     Dates: start: 202402
  4. ABEMACICLIB [Suspect]
     Active Substance: ABEMACICLIB
     Dosage: 100 MILLIGRAM
     Route: 048
     Dates: start: 202408
  5. GOSERELIN [Concomitant]
     Active Substance: GOSERELIN
     Indication: Breast cancer
     Dosage: UNK
     Route: 065

REACTIONS (8)
  - Neutropenia [Recovering/Resolving]
  - Anaemia [Recovering/Resolving]
  - Headache [Recovering/Resolving]
  - Fungal infection [Recovering/Resolving]
  - Diarrhoea [Recovering/Resolving]
  - Blood iron decreased [Recovering/Resolving]
  - Fatigue [Recovering/Resolving]
  - Decreased immune responsiveness [Recovering/Resolving]
